FAERS Safety Report 22088813 (Version 1)
Quarter: 2023Q1

REPORT INFORMATION
  Report Type: Spontaneous
  Country: IE (occurrence: IE)
  Receive Date: 20230313
  Receipt Date: 20230313
  Transmission Date: 20230418
  Serious: Yes (Hospitalization, Other)
  Sender: FDA-Public Use
  Company Number: IE-STERISCIENCE B.V.-2023-ST-001007

PATIENT
  Age: 31 Year
  Sex: Female

DRUGS (15)
  1. BUPIVACAINE [Suspect]
     Active Substance: BUPIVACAINE
     Indication: Local anaesthesia
     Dosage: 2.5 MILLIGRAM VIA A 27-GAUGE WHITACRE NEEDLE THROUGH THE TUOHY NEEDLE
     Route: 065
  2. BUPIVACAINE [Suspect]
     Active Substance: BUPIVACAINE
     Dosage: 7.5 MILLIGRAM VIA THE EPIDURAL CATHETER
  3. SALINE [Suspect]
     Active Substance: SODIUM CHLORIDE
     Indication: Product used for unknown indication
     Dosage: UNK
     Route: 065
  4. FENTANYL [Suspect]
     Active Substance: FENTANYL
     Indication: Analgesic therapy
     Dosage: 100 MICROGRAM VIA THE EPIDURAL CATHETER
  5. FENTANYL [Suspect]
     Active Substance: FENTANYL
     Dosage: 2 MICROGRAM PER ML VIA A PUMP CONNECTED TO CATHETER
  6. LEVOBUPIVACAINE [Suspect]
     Active Substance: LEVOBUPIVACAINE
     Indication: Local anaesthesia
     Dosage: 5 MILLILITER; BOLUS; VIA A PUMP CONNECTED TO CATHETER
  7. LEVOBUPIVACAINE [Suspect]
     Active Substance: LEVOBUPIVACAINE
     Dosage: 7 MILLILITER, Q30MIN; BOLUS; VIA A PUMP CONNECTED TO CATHETER
  8. PHENYLEPHRINE [Suspect]
     Active Substance: PHENYLEPHRINE HYDROCHLORIDE
     Indication: Hypotension
     Dosage: IV INFUSION
     Route: 042
  9. PHENYLEPHRINE [Suspect]
     Active Substance: PHENYLEPHRINE HYDROCHLORIDE
     Indication: Blood pressure management
     Dosage: 250 MICROGRAM
     Route: 065
  10. PHENYLEPHRINE [Suspect]
     Active Substance: PHENYLEPHRINE HYDROCHLORIDE
     Dosage: INTRAOPERATIVELY
     Route: 065
  11. LACTATED RINGERS SOLUTION [Suspect]
     Active Substance: CALCIUM CHLORIDE\POTASSIUM CHLORIDE\SODIUM CHLORIDE\SODIUM LACTATE
     Indication: Fluid replacement
     Dosage: IV INFUSION
     Route: 042
  12. LIDOCAINE [Suspect]
     Active Substance: LIDOCAINE
     Indication: Local anaesthesia
     Dosage: 10 MILLILITER IN 5 ML INCREMENTS, AFTER EVERY 5 MIN
  13. PROPOFOL [Suspect]
     Active Substance: PROPOFOL
     Indication: Induction of anaesthesia
     Dosage: 100 MILLIGRAM
     Route: 065
  14. SUCCINYLCHOLINE [Suspect]
     Active Substance: SUCCINYLCHOLINE
     Indication: Induction of anaesthesia
     Dosage: 150 MILLIGRAM
     Route: 065
  15. SEVOFLURANE [Suspect]
     Active Substance: SEVOFLURANE
     Indication: Maintenance of anaesthesia
     Dosage: (1.5-2%) IN 80%
     Route: 065

REACTIONS (5)
  - Horner^s syndrome [None]
  - Hypotension [None]
  - Motor dysfunction [None]
  - Maternal exposure during delivery [Unknown]
  - Delivery [Unknown]
